FAERS Safety Report 9815636 (Version 2)
Quarter: 2014Q1

REPORT INFORMATION
  Report Type: Spontaneous
  Country: US (occurrence: US)
  Receive Date: 20140114
  Receipt Date: 20140310
  Transmission Date: 20141002
  Serious: No
  Sender: FDA-Public Use
  Company Number: US-PFIZER INC-2014009922

PATIENT
  Sex: Male

DRUGS (1)
  1. BOSULIF [Suspect]
     Dosage: 500 MG, 1X/DAY
     Route: 048
     Dates: start: 201304

REACTIONS (2)
  - Feeling abnormal [Recovered/Resolved]
  - Pain [Unknown]
